FAERS Safety Report 7997995-6 (Version None)
Quarter: 2011Q4

REPORT INFORMATION
  Report Type: 
  Country: None (occurrence: None)
  Receive Date: 20111221
  Receipt Date: 20110204
  Transmission Date: 20120403
  Serious: No
  Sender: FDA-Public Use
  Company Number: US-GLAXOSMITHKLINE-A0750639A

PATIENT
  Age: 71 Year
  Sex: Male

DRUGS (2)
  1. NO CONCURRENT MEDICATION [Concomitant]
  2. LOVAZA [Suspect]
     Indication: BLOOD TRIGLYCERIDES INCREASED
     Dosage: 3CAP PER DAY
     Route: 048
     Dates: start: 20080927, end: 20080927

REACTIONS (10)
  - BLISTER [None]
  - HYPERSENSITIVITY [None]
  - REACTION TO DRUG EXCIPIENTS [None]
  - ARTHRALGIA [None]
  - FLATULENCE [None]
  - ASTHENIA [None]
  - HEADACHE [None]
  - THERAPEUTIC RESPONSE UNEXPECTED [None]
  - ARTHROPATHY [None]
  - ABDOMINAL DISTENSION [None]
